FAERS Safety Report 19670915 (Version 2)
Quarter: 2021Q4

REPORT INFORMATION
  Report Type: Report from Study
  Country: US (occurrence: US)
  Receive Date: 20210806
  Receipt Date: 20211012
  Transmission Date: 20220303
  Serious: No
  Sender: FDA-Public Use
  Company Number: US-TAKEDA-US201911311

PATIENT
  Sex: Male
  Weight: 33 kg

DRUGS (10)
  1. IDURSULFASE [Suspect]
     Active Substance: IDURSULFASE
     Indication: Mucopolysaccharidosis I
     Dosage: UNK
     Route: 042
     Dates: start: 20160817
  2. IDURSULFASE [Suspect]
     Active Substance: IDURSULFASE
     Indication: Mucopolysaccharidosis II
     Dosage: 18 GRAM, 1/WEEK
     Route: 042
     Dates: start: 20170215
  3. IDURSULFASE [Suspect]
     Active Substance: IDURSULFASE
     Dosage: 18 GRAM, 1/WEEK
     Route: 042
     Dates: start: 20170215
  4. ACETAMINOPHEN [Concomitant]
     Active Substance: ACETAMINOPHEN
  5. HEPARIN [Concomitant]
     Active Substance: HEPARIN SODIUM
  6. SODIUM CHLORIDE [Concomitant]
     Active Substance: SODIUM CHLORIDE
  7. LIDOCAINE [Concomitant]
     Active Substance: LIDOCAINE
  8. EPINEPHRINE [Concomitant]
     Active Substance: EPINEPHRINE
  9. VITAMINS [Concomitant]
     Active Substance: VITAMINS
  10. SODIUM CHLORIDE [Concomitant]
     Active Substance: SODIUM CHLORIDE

REACTIONS (3)
  - Inappropriate schedule of product administration [Recovered/Resolved]
  - Dermatitis allergic [Unknown]
  - Product use in unapproved indication [Unknown]
